FAERS Safety Report 25611704 (Version 3)
Quarter: 2025Q3

REPORT INFORMATION
  Report Type: Report from Study
  Country: US (occurrence: US)
  Receive Date: 20250728
  Receipt Date: 20250929
  Transmission Date: 20251021
  Serious: Yes (Other)
  Sender: TAKEDA
  Company Number: US-TAKEDA-2025TUS048627AA

PATIENT
  Sex: Male

DRUGS (2)
  1. IXAZOMIB [Suspect]
     Active Substance: IXAZOMIB
     Indication: Plasma cell myeloma
  2. LENALIDOMIDE [Concomitant]
     Active Substance: LENALIDOMIDE

REACTIONS (6)
  - Skin cancer [Unknown]
  - Pain [Not Recovered/Not Resolved]
  - Constipation [Unknown]
  - Diarrhoea [Unknown]
  - Myalgia [Not Recovered/Not Resolved]
  - Arthralgia [Not Recovered/Not Resolved]
